FAERS Safety Report 16552654 (Version 1)
Quarter: 2019Q3

REPORT INFORMATION
  Report Type: Spontaneous
  Country: DE (occurrence: DE)
  Receive Date: 20190710
  Receipt Date: 20190710
  Transmission Date: 20191004
  Serious: Yes (Other)
  Sender: FDA-Public Use
  Company Number: DE-PROVELL PHARMACEUTICALS-2070619

PATIENT
  Sex: Female

DRUGS (5)
  1. EUTHYROX [Suspect]
     Active Substance: LEVOTHYROXINE SODIUM
     Indication: POST PROCEDURAL HYPOTHYROIDISM
  2. EUTHYROX [Suspect]
     Active Substance: LEVOTHYROXINE SODIUM
     Dates: start: 2019
  3. EUTHYROX [Suspect]
     Active Substance: LEVOTHYROXINE SODIUM
  4. EUTHYROX [Suspect]
     Active Substance: LEVOTHYROXINE SODIUM
     Dates: start: 2019
  5. CANDESARTAN. [Suspect]
     Active Substance: CANDESARTAN
     Dates: start: 2019

REACTIONS (15)
  - Hip surgery [None]
  - Thyroid adenoma [None]
  - Pain [None]
  - Malaise [None]
  - Sleep disorder [None]
  - Abdominal discomfort [None]
  - Restlessness [None]
  - Heart rate increased [None]
  - Dyspnoea [None]
  - Product dose omission [None]
  - Drug interaction [None]
  - Discomfort [None]
  - Anxiety [None]
  - Chest discomfort [None]
  - Hypertension [None]

NARRATIVE: CASE EVENT DATE: 2018
